FAERS Safety Report 4842329-9 (Version None)
Quarter: 2005Q4

REPORT INFORMATION
  Report Type: 
  Country: None (occurrence: None)
  Receive Date: 20051129
  Receipt Date: 20051116
  Transmission Date: 20060501
  Serious: Yes (Other)
  Sender: FDA-Public Use
  Company Number: 2005152152

PATIENT
  Sex: Male

DRUGS (1)
  1. XALATAN [Suspect]
     Indication: GLAUCOMA
     Dosage: 1 DROP DAILY, OPHTHALMIC
     Route: 047
     Dates: end: 20030101

REACTIONS (2)
  - BLINDNESS UNILATERAL [None]
  - DRUG INEFFECTIVE [None]
